FAERS Safety Report 15752331 (Version 1)
Quarter: 2018Q4

REPORT INFORMATION
  Report Type: Spontaneous
  Country: KR (occurrence: KR)
  Receive Date: 20181221
  Receipt Date: 20181221
  Transmission Date: 20190205
  Serious: Yes (Other)
  Sender: FDA-Public Use
  Company Number: KR-DSJP-DSJ-2018-153703

PATIENT

DRUGS (2)
  1. UROLOGY MEDICINE [Concomitant]
     Dosage: UNK
     Route: 048
  2. EDOXABAN [Suspect]
     Active Substance: EDOXABAN TOSYLATE
     Indication: PRODUCT USED FOR UNKNOWN INDICATION
     Dosage: 30 MG,DAILY
     Route: 048

REACTIONS (2)
  - Haematuria [Unknown]
  - Renal impairment [Unknown]
